FAERS Safety Report 20783494 (Version 9)
Quarter: 2024Q1

REPORT INFORMATION
  Report Type: Spontaneous
  Country: ES (occurrence: ES)
  Receive Date: 20220504
  Receipt Date: 20240205
  Transmission Date: 20240409
  Serious: Yes (Death, Other)
  Sender: FDA-Public Use
  Company Number: ES-ROCHE-2893333

PATIENT
  Age: 50 Year
  Sex: Female
  Weight: 66.2 kg

DRUGS (5)
  1. CARBOPLATIN [Suspect]
     Active Substance: CARBOPLATIN
     Indication: Ovarian cancer recurrent
     Dosage: UNK
     Route: 042
     Dates: start: 20210720, end: 20210823
  2. DOXORUBICIN HYDROCHLORIDE [Suspect]
     Active Substance: DOXORUBICIN HYDROCHLORIDE
     Indication: Ovarian cancer recurrent
     Dosage: 30 MG/M2
     Route: 042
     Dates: start: 20210720, end: 20210823
  3. ATEZOLIZUMAB [Suspect]
     Active Substance: ATEZOLIZUMAB
     Indication: Malignant peritoneal neoplasm
     Dosage: 840 MG
     Route: 041
     Dates: start: 20210720, end: 20220124
  4. ATEZOLIZUMAB [Suspect]
     Active Substance: ATEZOLIZUMAB
     Indication: Ovarian cancer recurrent
     Dosage: UNK
     Route: 042
     Dates: start: 20210720, end: 20220124
  5. ATEZOLIZUMAB [Suspect]
     Active Substance: ATEZOLIZUMAB
     Dosage: UNK (DATE OF LAST ADMINISTRATION: 06/SEP/2021)
     Route: 042
     Dates: start: 20210720, end: 20210906

REACTIONS (3)
  - Death [Fatal]
  - Hyperthyroidism [Recovered/Resolved]
  - Hypothyroidism [Not Recovered/Not Resolved]

NARRATIVE: CASE EVENT DATE: 20210816
